FAERS Safety Report 9669615 (Version 1)
Quarter: 2013Q4

REPORT INFORMATION
  Report Type: Spontaneous
  Country: US (occurrence: None)
  Receive Date: 20131104
  Receipt Date: 20131104
  Transmission Date: 20140711
  Serious: Yes (Hospitalization)
  Sender: FDA-Public Use
  Company Number: None

PATIENT
  Age: 54 Year
  Sex: 0

DRUGS (2)
  1. ESCITALOPRAM [Suspect]
     Indication: ANXIETY
     Dosage: 20 MG 1 PILL AT BEDTIME TAKEN BY MOUTH
     Route: 048
     Dates: start: 20131023, end: 20131023
  2. CYCLOBENZAPRINE [Suspect]
     Indication: MUSCLE RELAXANT THERAPY
     Route: 048
     Dates: start: 20131023, end: 20131023

REACTIONS (6)
  - Chest pain [None]
  - Dyspepsia [None]
  - Burning sensation [None]
  - Dysuria [None]
  - Chromaturia [None]
  - Ulcer [None]
